FAERS Safety Report 18025627 (Version 2)
Quarter: 2020Q3

REPORT INFORMATION
  Report Type: Spontaneous
  Country: US (occurrence: US)
  Receive Date: 20200715
  Receipt Date: 20200717
  Transmission Date: 20201103
  Serious: No
  Sender: FDA-Public Use
  Company Number: US-GLAXOSMITHKLINE-US2020123972

PATIENT
  Sex: Male

DRUGS (1)
  1. FLONASE SENSIMIST ALLERGY RELIEF [Suspect]
     Active Substance: FLUTICASONE FUROATE
     Indication: COUGH
     Dosage: UNK

REACTIONS (5)
  - Insomnia [Unknown]
  - Screaming [Unknown]
  - Off label use [Unknown]
  - Abnormal behaviour [Unknown]
  - Product use in unapproved indication [Unknown]
